FAERS Safety Report 10561429 (Version 1)
Quarter: 2014Q4

REPORT INFORMATION
  Report Type: Spontaneous
  Country: US (occurrence: US)
  Receive Date: 20141103
  Receipt Date: 20141103
  Transmission Date: 20150529
  Serious: Yes (Hospitalization)
  Sender: FDA-Public Use
  Company Number: US-CUBIST PHARMACEUTICALS, INC.-2014CBST001511

PATIENT

DRUGS (2)
  1. CUBICIN [Suspect]
     Active Substance: DAPTOMYCIN
     Indication: STAPHYLOCOCCAL BACTERAEMIA
     Dosage: 6.01 MG/KG (INFUSION), QD
     Route: 042
     Dates: start: 20141022
  2. CUBICIN [Suspect]
     Active Substance: DAPTOMYCIN
     Dosage: 925 MG (INFUSION), QD
     Route: 042
     Dates: start: 20141022

REACTIONS (1)
  - Dyspnoea [Recovered/Resolved]

NARRATIVE: CASE EVENT DATE: 20141025
